FAERS Safety Report 21239083 (Version 1)
Quarter: 2022Q3

REPORT INFORMATION
  Report Type: Spontaneous
  Country: FR (occurrence: FR)
  Receive Date: 20220822
  Receipt Date: 20220822
  Transmission Date: 20221026
  Serious: Yes (Life-Threatening, Other)
  Sender: FDA-Public Use
  Company Number: None

PATIENT
  Age: 80 Year
  Sex: Female
  Weight: 85.4 kg

DRUGS (3)
  1. PREGABALIN [Suspect]
     Active Substance: PREGABALIN
     Indication: Arthralgia
     Dosage: 50 MILLIGRAM, QD (2 X 25 MG IN THE EVENING)
     Route: 048
     Dates: start: 20220103, end: 20220712
  2. BUDESONIDE [Suspect]
     Active Substance: BUDESONIDE
     Indication: Colitis microscopic
     Dosage: 3 MILLIGRAM, Q8H (3 CAPSULES/DAY)
     Route: 048
     Dates: start: 20220628, end: 20220712
  3. ALPRAZOLAM [Suspect]
     Active Substance: ALPRAZOLAM
     Indication: Anxiety
     Dosage: 0.38 MILLIGRAM PER GRAM, QD (ROUTINE UNTIL 28-JUN-2022 THEN AS NEEDED)
     Route: 048
     Dates: start: 20200317

REACTIONS (4)
  - Myocardial infarction [Recovered/Resolved with Sequelae]
  - Cardiac failure [Recovered/Resolved with Sequelae]
  - Acute pulmonary oedema [Recovered/Resolved with Sequelae]
  - Confusional state [Recovered/Resolved]

NARRATIVE: CASE EVENT DATE: 20220704
